FAERS Safety Report 10559062 (Version 2)
Quarter: 2016Q1

REPORT INFORMATION
  Report Type: Report from Study
  Country: RU (occurrence: RU)
  Receive Date: 20141103
  Receipt Date: 20160218
  Transmission Date: 20160525
  Serious: Yes (Other)
  Sender: FDA-Public Use
  Company Number: RU-ROCHE-1483674

PATIENT

DRUGS (2)
  1. RITUXIMAB [Suspect]
     Active Substance: RITUXIMAB
     Indication: SYSTEMIC SCLEROSIS
     Dosage: 0.5 TO 2 G PER COURSE OR 0.5-1.0 G PER INFUSION
     Route: 042
  2. RITUXIMAB [Suspect]
     Active Substance: RITUXIMAB
     Indication: SYSTEMIC SCLEROSIS

REACTIONS (2)
  - Pancreatitis [Unknown]
  - Product use issue [Unknown]
